FAERS Safety Report 6528190-5 (Version None)
Quarter: 2010Q1

REPORT INFORMATION
  Report Type: 
  Country: None (occurrence: None)
  Receive Date: 20100106
  Receipt Date: 20100104
  Transmission Date: 20100710
  Serious: Yes (Other)
  Sender: FDA-Public Use
  Company Number: US-JNJFOC-20091006827

PATIENT
  Sex: Female
  Weight: 80.29 kg

DRUGS (9)
  1. REMICADE [Suspect]
     Indication: FATIGUE
     Route: 042
     Dates: start: 20090101
  2. REMICADE [Suspect]
     Indication: RHEUMATOID ARTHRITIS
     Dosage: EVERY MONTH
     Route: 042
     Dates: start: 20090101
  3. MICARDIS [Concomitant]
     Indication: BLOOD PRESSURE
  4. MAXZIDE [Concomitant]
  5. DILAUDID [Concomitant]
     Indication: PAIN
  6. VITAMINS AND MINERALS [Concomitant]
  7. VITAMIN D [Concomitant]
  8. CALCIUM [Concomitant]
  9. MAGNESIUM [Concomitant]

REACTIONS (4)
  - CATARACT [None]
  - DRUG INEFFECTIVE [None]
  - FATIGUE [None]
  - PYREXIA [None]
